FAERS Safety Report 25953966 (Version 1)
Quarter: 2025Q4

REPORT INFORMATION
  Report Type: Spontaneous
  Country: EU (occurrence: EU)
  Receive Date: 20251023
  Receipt Date: 20251023
  Transmission Date: 20260117
  Serious: Yes (Death)
  Sender: MYLAN
  Company Number: None

PATIENT
  Age: 64 Year
  Sex: Male
  Weight: 70 kg

DRUGS (16)
  1. ZOLOFT [Suspect]
     Active Substance: SERTRALINE HYDROCHLORIDE
     Indication: Depression
     Dosage: UNKNOWN DOSE
  2. ZOLOFT [Suspect]
     Active Substance: SERTRALINE HYDROCHLORIDE
     Dosage: UNKNOWN DOSE
     Route: 048
  3. ZOLOFT [Suspect]
     Active Substance: SERTRALINE HYDROCHLORIDE
     Dosage: UNKNOWN DOSE
     Route: 048
  4. ZOLOFT [Suspect]
     Active Substance: SERTRALINE HYDROCHLORIDE
     Dosage: UNKNOWN DOSE
  5. LOVENOX [Suspect]
     Active Substance: ENOXAPARIN SODIUM
     Indication: Prophylaxis
     Dosage: 1 DOSAGE FORM, QD (1 DF/D) (4,000 IU ANTI-XA/0.4 ML, SOLUTION FOR INJECTION IN CARTRIDGE)
     Dates: start: 20250721, end: 20250919
  6. LOVENOX [Suspect]
     Active Substance: ENOXAPARIN SODIUM
     Dosage: 1 DOSAGE FORM, QD (1 DF/D) (4,000 IU ANTI-XA/0.4 ML, SOLUTION FOR INJECTION IN CARTRIDGE)
     Route: 058
     Dates: start: 20250721, end: 20250919
  7. LOVENOX [Suspect]
     Active Substance: ENOXAPARIN SODIUM
     Dosage: 1 DOSAGE FORM, QD (1 DF/D) (4,000 IU ANTI-XA/0.4 ML, SOLUTION FOR INJECTION IN CARTRIDGE)
     Route: 058
     Dates: start: 20250721, end: 20250919
  8. LOVENOX [Suspect]
     Active Substance: ENOXAPARIN SODIUM
     Dosage: 1 DOSAGE FORM, QD (1 DF/D) (4,000 IU ANTI-XA/0.4 ML, SOLUTION FOR INJECTION IN CARTRIDGE)
     Dates: start: 20250721, end: 20250919
  9. VIMPAT [Suspect]
     Active Substance: LACOSAMIDE
     Indication: Epilepsy
     Dosage: UNKNOWN DOSE
  10. VIMPAT [Suspect]
     Active Substance: LACOSAMIDE
     Dosage: UNKNOWN DOSE
     Route: 048
  11. VIMPAT [Suspect]
     Active Substance: LACOSAMIDE
     Dosage: UNKNOWN DOSE
     Route: 048
  12. VIMPAT [Suspect]
     Active Substance: LACOSAMIDE
     Dosage: UNKNOWN DOSE
  13. CLOBAZAM [Suspect]
     Active Substance: CLOBAZAM
     Indication: Epilepsy
     Dosage: UNKNOWN DOSE
  14. CLOBAZAM [Suspect]
     Active Substance: CLOBAZAM
     Dosage: UNKNOWN DOSE
     Route: 048
  15. CLOBAZAM [Suspect]
     Active Substance: CLOBAZAM
     Dosage: UNKNOWN DOSE
     Route: 048
  16. CLOBAZAM [Suspect]
     Active Substance: CLOBAZAM
     Dosage: UNKNOWN DOSE

REACTIONS (1)
  - Fall [Fatal]

NARRATIVE: CASE EVENT DATE: 20250918
